FAERS Safety Report 25579367 (Version 2)
Quarter: 2025Q3

REPORT INFORMATION
  Report Type: Report from Study
  Country: US (occurrence: US)
  Receive Date: 20250718
  Receipt Date: 20250804
  Transmission Date: 20251021
  Serious: No
  Sender: MERCK SHARP & DOHME LLC
  Company Number: US-009507513-2308169

PATIENT
  Age: 19 Year
  Sex: Female
  Weight: 61.235 kg

DRUGS (6)
  1. WINREVAIR [Suspect]
     Active Substance: SOTATERCEPT-CSRK
     Indication: Pulmonary arterial hypertension
     Route: 058
     Dates: start: 20241118
  2. MACITENTAN [Concomitant]
     Active Substance: MACITENTAN
  3. AMLODIPINE [Concomitant]
     Active Substance: AMLODIPINE BESYLATE
  4. OPSUMIT [Concomitant]
     Active Substance: MACITENTAN
  5. REMODULIN [Concomitant]
     Active Substance: TREPROSTINIL
     Route: 058
  6. TADALAFIL [Concomitant]
     Active Substance: TADALAFIL

REACTIONS (5)
  - Rash [Recovered/Resolved]
  - Device malfunction [Unknown]
  - Syringe issue [Unknown]
  - Product preparation issue [Unknown]
  - Inappropriate schedule of product administration [Unknown]

NARRATIVE: CASE EVENT DATE: 20250711
